FAERS Safety Report 8283023-4 (Version None)
Quarter: 2012Q2

REPORT INFORMATION
  Report Type: 
  Country: None (occurrence: None)
  Receive Date: 20120413
  Receipt Date: 20120405
  Transmission Date: 20120825
  Serious: No
  Sender: FDA-Public Use
  Company Number: US-B.I. PHARMACEUTICALS,INC./RIDGEFIELD-2012-BP-06428BP

PATIENT
  Sex: Male

DRUGS (5)
  1. CETUXIMAB [Concomitant]
     Indication: THROAT CANCER
  2. FLOMAX [Suspect]
     Indication: BENIGN PROSTATIC HYPERPLASIA
     Dosage: 0.4 MG
     Dates: start: 20120301
  3. MORPHINE [Concomitant]
     Indication: OROPHARYNGEAL PAIN
  4. REGLAN [Concomitant]
     Indication: NAUSEA
  5. METHADONE HCL [Concomitant]
     Indication: OROPHARYNGEAL PAIN

REACTIONS (1)
  - FEEDING TUBE COMPLICATION [None]
